FAERS Safety Report 15001644 (Version 1)
Quarter: 2018Q2

REPORT INFORMATION
  Report Type: Spontaneous
  Country: CA (occurrence: CA)
  Receive Date: 20180612
  Receipt Date: 20180612
  Transmission Date: 20180711
  Serious: Yes (Congenital Anomaly, Other)
  Sender: FDA-Public Use
  Company Number: CA-APTEVO BIOTHERAPEUTICS LLC-18WR00008SP

PATIENT
  Sex: Male

DRUGS (1)
  1. WINRHO SDF [Suspect]
     Active Substance: HUMAN RHO(D) IMMUNE GLOBULIN
     Indication: PROPHYLAXIS AGAINST RH ISOIMMUNISATION
     Dosage: 1500 IU, SINGLE
     Route: 064

REACTIONS (4)
  - Atrial septal defect [Unknown]
  - Pulmonary artery stenosis congenital [Unknown]
  - Premature baby [Unknown]
  - Hypoglycaemia neonatal [Unknown]

NARRATIVE: CASE EVENT DATE: 201801
